FAERS Safety Report 5964845-9 (Version None)
Quarter: 2008Q4

REPORT INFORMATION
  Report Type: 
  Country: None (occurrence: None)
  Receive Date: 20081124
  Receipt Date: 20081124
  Transmission Date: 20090506
  Serious: Yes (Other)
  Sender: FDA-Public Use
  Company Number: None

PATIENT
  Sex: Female
  Weight: 64.1 kg

DRUGS (2)
  1. CLOFARABINE 20MG/20ML [Suspect]
     Indication: ACUTE MYELOID LEUKAEMIA RECURRENT
     Dosage: 30MG/M2 D1-5 IV
     Route: 042
     Dates: start: 20081106, end: 20081110
  2. GEMTUZUMAB 5MG [Suspect]
     Dosage: 3MG/M2 D1,4,7 IV
     Route: 042
     Dates: start: 20081106, end: 20081112

REACTIONS (7)
  - ANAEMIA [None]
  - DIZZINESS [None]
  - HAEMORRHAGE [None]
  - HYPOTENSION [None]
  - RENAL FAILURE ACUTE [None]
  - THROMBOSIS [None]
  - VAGINAL HAEMORRHAGE [None]
